FAERS Safety Report 7153644-0 (Version None)
Quarter: 2010Q4

REPORT INFORMATION
  Report Type: 
  Country: None (occurrence: None)
  Receive Date: 20101123
  Receipt Date: 20100929
  Transmission Date: 20110411
  Serious: No
  Sender: FDA-Public Use
  Company Number: 020234

PATIENT
  Sex: Female
  Weight: 65.8 kg

DRUGS (8)
  1. CIMZIA [Suspect]
     Indication: CROHN'S DISEASE
     Dosage: 400 MG 1X/MONTH SUBCUTANEOUS
     Route: 058
     Dates: start: 20100222
  2. TEGRETOL [Concomitant]
  3. TRANXENE [Concomitant]
  4. AMITRIPTYLINE [Concomitant]
  5. LUNESTA [Concomitant]
  6. MULTI-VITAMINS [Concomitant]
  7. VITAMIN B-12 [Concomitant]
  8. HYDROCODONE [Concomitant]

REACTIONS (2)
  - ABDOMINAL PAIN [None]
  - BLOOD PRESSURE INCREASED [None]
